FAERS Safety Report 5343974-7 (Version None)
Quarter: 2007Q2

REPORT INFORMATION
  Report Type: 
  Country: None (occurrence: None)
  Receive Date: 20070531
  Receipt Date: 20070531
  Transmission Date: 20071010
  Serious: Yes (Life-Threatening, Hospitalization)
  Sender: FDA-Public Use
  Company Number: None

PATIENT
  Age: 81 Year
  Sex: Female

DRUGS (7)
  1. WARFARIN SODIUM [Suspect]
     Indication: ATRIAL FIBRILLATION
     Dosage: PO
     Route: 048
  2. WARFARIN SODIUM [Concomitant]
  3. ATENOLOL [Concomitant]
  4. COLCHICINE [Concomitant]
  5. TRIAMTERENE AND HYDROCHLOROTHIAZIDE [Concomitant]
  6. DIGOXIN [Concomitant]
  7. RYTHMOL [Concomitant]

REACTIONS (2)
  - COAGULOPATHY [None]
  - HAEMORRHAGE INTRACRANIAL [None]
